FAERS Safety Report 9084569 (Version 1)
Quarter: 2013Q1

REPORT INFORMATION
  Report Type: Report from Study
  Country: US (occurrence: US)
  Receive Date: 20130131
  Receipt Date: 20130131
  Transmission Date: 20140127
  Serious: No
  Sender: FDA-Public Use
  Company Number: US-ABBOTT-12P-163-1014785-00

PATIENT
  Age: 30 Year
  Sex: Female

DRUGS (6)
  1. HUMIRA [Suspect]
     Indication: PSORIASIS
     Route: 058
     Dates: start: 20121126, end: 20121126
  2. HUMIRA [Suspect]
     Route: 058
     Dates: start: 20121203
  3. HUMIRA [Suspect]
  4. SYNTHROID [Concomitant]
     Indication: PRODUCT USED FOR UNKNOWN INDICATION
     Dosage: 75 MCG DAILY
  5. ORTHO TRI CYCLEN [Concomitant]
     Indication: CONTRACEPTION
  6. OMEPRAZOLE [Concomitant]
     Indication: CHOLECYSTECTOMY

REACTIONS (4)
  - Injection site bruising [Recovering/Resolving]
  - Headache [Recovered/Resolved]
  - Injection site erythema [Not Recovered/Not Resolved]
  - Injection site pruritus [Unknown]
